FAERS Safety Report 7543066-2 (Version None)
Quarter: 2011Q2

REPORT INFORMATION
  Report Type: 
  Country: None (occurrence: None)
  Receive Date: 20110524
  Receipt Date: 20110124
  Transmission Date: 20111010
  Serious: No
  Sender: FDA-Public Use
  Company Number: 020167

PATIENT
  Sex: Female

DRUGS (3)
  1. CIMZIA [Suspect]
     Indication: CROHN'S DISEASE
     Dosage: (400 MG, INITIAL DOSE ONLY SUBCUTANEOUS), (200 MG, EVERY 28 DAYS SUBCUTANEOUS)
     Route: 058
     Dates: start: 20101011
  2. CIMZIA [Suspect]
     Indication: CROHN'S DISEASE
     Dosage: (400 MG, INITIAL DOSE ONLY SUBCUTANEOUS), (200 MG, EVERY 28 DAYS SUBCUTANEOUS)
     Route: 058
     Dates: start: 20100701, end: 20100101
  3. LOVENOX [Concomitant]

REACTIONS (4)
  - PAIN IN EXTREMITY [None]
  - NAIL BED INFLAMMATION [None]
  - SINUSITIS [None]
  - LOCALISED INFECTION [None]
